FAERS Safety Report 5449707-8 (Version None)
Quarter: 2007Q3

REPORT INFORMATION
  Report Type: 
  Country: None (occurrence: None)
  Receive Date: 20070912
  Receipt Date: 20070831
  Transmission Date: 20080115
  Serious: Yes (Death, Life-Threatening, Hospitalization)
  Sender: FDA-Public Use
  Company Number: JP-JNJFOC-20070701573

PATIENT
  Sex: Male
  Weight: 63 kg

DRUGS (16)
  1. REMICADE [Suspect]
     Route: 042
  2. REMICADE [Suspect]
     Route: 042
  3. REMICADE [Suspect]
     Route: 042
  4. REMICADE [Suspect]
     Route: 042
  5. REMICADE [Suspect]
     Route: 042
  6. REMICADE [Suspect]
     Indication: RHEUMATOID ARTHRITIS
     Route: 042
  7. RHEUMATREX [Suspect]
     Indication: RHEUMATOID ARTHRITIS
     Route: 048
  8. PREDNISOLONE [Concomitant]
     Indication: RHEUMATOID ARTHRITIS
     Route: 048
  9. RIMATIL [Concomitant]
     Indication: RHEUMATOID ARTHRITIS
     Route: 048
  10. INFREE [Concomitant]
     Indication: ANTIINFLAMMATORY THERAPY
     Route: 048
  11. INFREE [Concomitant]
     Indication: ANALGESIA
     Route: 048
  12. INFREE [Concomitant]
     Indication: RHEUMATOID ARTHRITIS
     Route: 048
  13. CYTOTEC [Concomitant]
     Indication: GASTRITIS PROPHYLAXIS
     Route: 048
  14. ADRENAL HORMONE PREPARATIONS [Concomitant]
     Indication: RHEUMATOID ARTHRITIS
  15. FOLIAMIN [Concomitant]
     Indication: NUTRITIONAL SUPPORT
  16. FOSAMAC [Concomitant]
     Indication: OSTEOPOROSIS

REACTIONS (2)
  - INTERSTITIAL LUNG DISEASE [None]
  - STAPHYLOCOCCAL INFECTION [None]
